FAERS Safety Report 15163542 (Version 1)
Quarter: 2018Q3

REPORT INFORMATION
  Report Type: Spontaneous
  Country: ES (occurrence: ES)
  Receive Date: 20180719
  Receipt Date: 20180719
  Transmission Date: 20181010
  Serious: Yes (Life-Threatening, Hospitalization)
  Sender: FDA-Public Use
  Company Number: ES-TEVA-2018-ES-928443

PATIENT
  Age: 62 Year
  Sex: Female

DRUGS (3)
  1. PREDNISONA (886A) [Suspect]
     Active Substance: PREDNISONE
     Indication: DERMATOMYOSITIS
     Dosage: 20 MILLIGRAM DAILY;
     Route: 048
     Dates: start: 20160604, end: 20180115
  2. METOTREXATO (418A) [Interacting]
     Active Substance: METHOTREXATE
     Indication: DERMATOMYOSITIS
     Route: 058
     Dates: start: 201710, end: 20180115
  3. CICLOSPORINA (406A) [Interacting]
     Active Substance: CYCLOSPORINE
     Indication: DERMATOMYOSITIS
     Route: 048
     Dates: start: 20160604, end: 20180122

REACTIONS (2)
  - Drug interaction [Recovered/Resolved]
  - Pneumocystis jirovecii pneumonia [Recovered/Resolved]

NARRATIVE: CASE EVENT DATE: 20171223
